FAERS Safety Report 21354940 (Version 3)
Quarter: 2022Q4

REPORT INFORMATION
  Report Type: Report from Study
  Country: BR (occurrence: BR)
  Receive Date: 20220920
  Receipt Date: 20221026
  Transmission Date: 20230113
  Serious: Yes (Hospitalization, Other)
  Sender: FDA-Public Use
  Company Number: BR-MYLANLABS-2022M1094650

PATIENT
  Age: 90 Year
  Sex: Female
  Weight: 83 kg

DRUGS (16)
  1. CLOZAPINE [Suspect]
     Active Substance: CLOZAPINE
     Indication: Hallucination
     Dosage: 25 MILLIGRAM, QD
     Route: 065
     Dates: start: 20210115
  2. CLOZAPINE [Suspect]
     Active Substance: CLOZAPINE
     Indication: Delusion
     Dosage: 25 MILLIGRAM, QD (G-TUBE THROUGH THE STOMACH)
     Route: 065
     Dates: start: 202206
  3. CLOZAPINE [Suspect]
     Active Substance: CLOZAPINE
     Dosage: 125 MILLIGRAM, QD
     Route: 048
     Dates: start: 20210115
  4. CLOZAPINE [Suspect]
     Active Substance: CLOZAPINE
     Indication: Hallucination
     Dosage: 100 MILLIGRAM, QD
     Route: 065
     Dates: start: 20210115
  5. CLOZAPINE [Suspect]
     Active Substance: CLOZAPINE
     Indication: Delusion
     Dosage: 100 MILLIGRAM, QD (G-TUBE THROUGH THE STOMACH)
     Route: 065
     Dates: start: 202206
  6. CLOZAPINE [Suspect]
     Active Substance: CLOZAPINE
     Dosage: 150 MILLIGRAM, QD
     Dates: start: 202210
  7. PANTOPRAZOLE [Concomitant]
     Active Substance: PANTOPRAZOLE
     Indication: Prophylaxis
     Dosage: 20 MILLIGRAM, QD
     Route: 065
  8. MEMANTINE [Concomitant]
     Active Substance: MEMANTINE
     Indication: Dementia Alzheimer^s type
     Dosage: 20 MILLIGRAM, QD
     Route: 065
  9. DONEPEZIL [Concomitant]
     Active Substance: DONEPEZIL
     Indication: Dementia Alzheimer^s type
     Dosage: 10 MILLIGRAM, QD
     Route: 065
  10. SERTRALINE [Concomitant]
     Active Substance: SERTRALINE HYDROCHLORIDE
     Indication: Depressive symptom
     Dosage: 50 MILLIGRAM, QD
     Route: 065
  11. XARELTO [Concomitant]
     Active Substance: RIVAROXABAN
     Indication: Anticoagulant therapy
     Dosage: 15 MILLIGRAM
     Route: 065
  12. METOPROLOL SUCCINATE [Concomitant]
     Active Substance: METOPROLOL SUCCINATE
     Indication: Cardiac disorder
     Dosage: 100 MILLIGRAM
     Route: 065
  13. ACETAMINOPHEN [Concomitant]
     Active Substance: ACETAMINOPHEN
     Indication: Pain
     Dosage: 750 MILLIGRAM, PRN
     Route: 065
  14. IRON POLYMALTOSE [Concomitant]
     Active Substance: IRON POLYMALTOSE
     Indication: Anaemia
     Dosage: UNK
     Route: 065
  15. LACTULONA [Concomitant]
     Indication: Gastrointestinal disorder
     Dosage: UNK
     Route: 065
  16. IPRATROPIUM [Concomitant]
     Active Substance: IPRATROPIUM
     Indication: Airway secretion clearance therapy
     Dosage: UNK

REACTIONS (10)
  - Pneumonia [Recovering/Resolving]
  - COVID-19 [Recovered/Resolved]
  - Aspiration [Unknown]
  - Dementia Alzheimer^s type [Unknown]
  - Gastric disorder [Unknown]
  - Feeding disorder [Unknown]
  - Wrong technique in product usage process [Unknown]
  - Product availability issue [Unknown]
  - Bedridden [Unknown]
  - Off label use [Unknown]

NARRATIVE: CASE EVENT DATE: 20220501
